FAERS Safety Report 6858897-1 (Version None)
Quarter: 2010Q3

REPORT INFORMATION
  Report Type: 
  Country: None (occurrence: None)
  Receive Date: 20100719
  Receipt Date: 20080219
  Transmission Date: 20110219
  Serious: No
  Sender: FDA-Public Use
  Company Number: US-PFIZER INC-2008016411

PATIENT
  Sex: Female
  Weight: 56.818 kg

DRUGS (2)
  1. CHANTIX [Suspect]
     Indication: SMOKING CESSATION THERAPY
     Route: 048
     Dates: start: 20080101
  2. FLOVENT [Concomitant]
     Indication: ASTHMA
     Route: 055

REACTIONS (3)
  - DRY MOUTH [None]
  - HYPERSOMNIA [None]
  - INSOMNIA [None]
